FAERS Safety Report 7161645-1 (Version None)
Quarter: 2010Q4

REPORT INFORMATION
  Report Type: 
  Country: None (occurrence: None)
  Receive Date: 20101215
  Receipt Date: 20101210
  Transmission Date: 20110411
  Serious: Yes (Death, Other)
  Sender: FDA-Public Use
  Company Number: JP-NOVOPROD-319377

PATIENT
  Age: 69 Year
  Sex: Male
  Weight: 39 kg

DRUGS (5)
  1. VICTOZA [Suspect]
     Indication: TYPE 2 DIABETES MELLITUS
     Dosage: 0.3 MG, QD
     Route: 058
     Dates: start: 20100925
  2. VICTOZA [Suspect]
     Dosage: 0.9 MG, QD
     Route: 058
     Dates: start: 20101002
  3. GLIMICRON [Concomitant]
     Dosage: 80 MG, QD
     Route: 048
  4. ADALAT CC [Concomitant]
     Dosage: 20 MG, QD
     Route: 048
  5. TAKEPRON [Concomitant]
     Dosage: 30 MG, QD
     Route: 048

REACTIONS (7)
  - ADRENOCORTICAL INSUFFICIENCY ACUTE [None]
  - ANGINA PECTORIS [None]
  - CARDIAC ARREST [None]
  - GASTROINTESTINAL NECROSIS [None]
  - KETOACIDOSIS [None]
  - MULTI-ORGAN FAILURE [None]
  - POSTRESUSCITATION ENCEPHALOPATHY [None]
